FAERS Safety Report 7804110-8 (Version None)
Quarter: 2011Q4

REPORT INFORMATION
  Report Type: 
  Country: None (occurrence: None)
  Receive Date: 20111010
  Receipt Date: 20110927
  Transmission Date: 20120403
  Serious: Yes (Death)
  Sender: FDA-Public Use
  Company Number: KR-ASTELLAS-2011US006502

PATIENT
  Sex: Female
  Weight: 54 kg

DRUGS (3)
  1. LANTUS [Concomitant]
     Indication: DIABETES MELLITUS
     Dosage: 10 DF, UNKNOWN/D
     Route: 042
     Dates: start: 20070719, end: 20070801
  2. ATACAND [Concomitant]
     Indication: HYPERTENSION
     Dosage: 8 MG, UID/QD
     Route: 065
     Dates: start: 20070719, end: 20070801
  3. ERLOTINIB HYDROCHLORIDE [Suspect]
     Indication: PANCREATIC CARCINOMA
     Dosage: 100 MG, UID/QD
     Route: 048
     Dates: start: 20070719, end: 20110726

REACTIONS (1)
  - BLOOD BILIRUBIN INCREASED [None]
